FAERS Safety Report 4905722-1 (Version None)
Quarter: 2006Q1

REPORT INFORMATION
  Report Type: 
  Country: None (occurrence: None)
  Receive Date: 20060206
  Receipt Date: 20060119
  Transmission Date: 20060701
  Serious: Yes (Life-Threatening, Hospitalization)
  Sender: FDA-Public Use
  Company Number: 2006015773

PATIENT
  Age: 15 Year
  Sex: Female

DRUGS (5)
  1. SERTRALINE [Suspect]
     Indication: ILL-DEFINED DISORDER
     Dosage: APPROXIMATELY  3.5 G, UNKNOWN
  2. TOPIRAMATE [Suspect]
     Indication: ILL-DEFINED DISORDER
     Dosage: APPROXIMATELY 3.0 G, UNKNOWN
  3. OXCARBAZEPINE [Suspect]
     Indication: ILL-DEFINED DISORDER
     Dosage: APPROXIMATELY 2.0 G, UNKNOWN
  4. BENZODIAZEPINE DERIVATIVES (BENZODIAZEPINE DERIVATIVES) [Concomitant]
  5. TRICYCLIC ANTIDEPRESSANTS (TRICYCLIC ANTIDEPRESSANTS) [Concomitant]

REACTIONS (8)
  - ACIDOSIS HYPERCHLORAEMIC [None]
  - BLOOD BICARBONATE DECREASED [None]
  - BLOOD CHLORIDE INCREASED [None]
  - BLOOD PH DECREASED [None]
  - CARBON DIOXIDE DECREASED [None]
  - MENTAL STATUS CHANGES [None]
  - OVERDOSE [None]
  - RESPIRATORY DISORDER [None]
